FAERS Safety Report 5021027-5 (Version None)
Quarter: 2006Q2

REPORT INFORMATION
  Report Type: 
  Country: None (occurrence: None)
  Receive Date: 20060608
  Receipt Date: 20050726
  Transmission Date: 20061013
  Serious: Yes (Hospitalization)
  Sender: FDA-Public Use
  Company Number: 200512182JP

PATIENT
  Age: 51 Year
  Sex: Female
  Weight: 43 kg

DRUGS (5)
  1. ARAVA [Suspect]
     Indication: RHEUMATOID ARTHRITIS
     Route: 048
     Dates: start: 20050712, end: 20050714
  2. ARAVA [Suspect]
     Route: 048
     Dates: start: 20050715, end: 20050721
  3. RHEUMATREX [Concomitant]
     Indication: RHEUMATOID ARTHRITIS
     Route: 048
     Dates: start: 20040809, end: 20050710
  4. PREDNISOLONE [Concomitant]
     Indication: RHEUMATOID ARTHRITIS
     Route: 048
     Dates: end: 20050721
  5. SOLON [Concomitant]
     Indication: GASTRIC ULCER
     Route: 048
     Dates: end: 20050721

REACTIONS (7)
  - ALANINE AMINOTRANSFERASE DECREASED [None]
  - ASPARTATE AMINOTRANSFERASE INCREASED [None]
  - BIOPSY SKIN ABNORMAL [None]
  - HEPATIC FUNCTION ABNORMAL [None]
  - PYREXIA [None]
  - STEVENS-JOHNSON SYNDROME [None]
  - TOXIC EPIDERMAL NECROLYSIS [None]
